FAERS Safety Report 6040748-9 (Version None)
Quarter: 2009Q1

REPORT INFORMATION
  Report Type: 
  Country: None (occurrence: None)
  Receive Date: 20090116
  Receipt Date: 20080519
  Transmission Date: 20090719
  Serious: No
  Sender: FDA-Public Use
  Company Number: US-BRISTOL-MYERS SQUIBB COMPANY-14196497

PATIENT
  Age: 62 Year
  Sex: Male

DRUGS (3)
  1. ABILIFY [Suspect]
  2. SINEMET [Concomitant]
  3. ATIVAN [Concomitant]

REACTIONS (3)
  - DYSKINESIA [None]
  - EXTRASYSTOLES [None]
  - HEADACHE [None]
